FAERS Safety Report 12822570 (Version 2)
Quarter: 2017Q2

REPORT INFORMATION
  Report Type: Spontaneous
  Country: US (occurrence: US)
  Receive Date: 20161006
  Receipt Date: 20170417
  Transmission Date: 20170830
  Serious: No
  Sender: FDA-Public Use
  Company Number: US-SHIONOGI, INC-2016000832

PATIENT
  Age: 62 Year
  Sex: Female
  Weight: 85.26 kg

DRUGS (2)
  1. OSPHENA [Suspect]
     Active Substance: OSPEMIFENE
     Indication: VULVOVAGINAL ERYTHEMA
     Dosage: 60 MG, QD
     Route: 048
     Dates: start: 20160819
  2. OSPHENA [Suspect]
     Active Substance: OSPEMIFENE
     Indication: OFF LABEL USE

REACTIONS (2)
  - Vulvovaginal erythema [Unknown]
  - Off label use [Unknown]

NARRATIVE: CASE EVENT DATE: 20160819
